FAERS Safety Report 21718896 (Version 1)
Quarter: 2022Q4

REPORT INFORMATION
  Report Type: Spontaneous
  Country: US (occurrence: US)
  Receive Date: 20221213
  Receipt Date: 20221213
  Transmission Date: 20230112
  Serious: Yes (Other)
  Sender: FDA-Public Use
  Company Number: US-SA-SAC20221209001495

PATIENT
  Age: 47 Year
  Sex: Female

DRUGS (3)
  1. KEVZARA [Suspect]
     Active Substance: SARILUMAB
     Indication: Rheumatoid arthritis
     Dosage: 1.14 ML, QOW
     Route: 058
     Dates: start: 20220609
  2. MELOXICAM [Concomitant]
     Active Substance: MELOXICAM
     Dosage: UNK MG
  3. LORATADINE [Concomitant]
     Active Substance: LORATADINE
     Dosage: UNK

REACTIONS (1)
  - Knee arthroplasty [Unknown]
